FAERS Safety Report 16875449 (Version 1)
Quarter: 2019Q4

REPORT INFORMATION
  Report Type: Spontaneous
  Country: US (occurrence: US)
  Receive Date: 20190807
  Receipt Date: 20190807
  Transmission Date: 20200122
  Serious: No
  Sender: FDA-Public Use
  Company Number: None

PATIENT
  Sex: Female

DRUGS (1)
  1. STELARA [Suspect]
     Active Substance: USTEKINUMAB
     Indication: ARTHROPATHY
     Dosage: ?          OTHER FREQUENCY:Q12W;?
     Route: 058
     Dates: start: 20180809

REACTIONS (2)
  - Exposure during pregnancy [None]
  - Cholestasis of pregnancy [None]
